FAERS Safety Report 8953754 (Version 1)
Quarter: 2012Q4

REPORT INFORMATION
  Report Type: 
  Country: AU (occurrence: AU)
  Receive Date: 20121206
  Receipt Date: 20121206
  Transmission Date: 20130627
  Serious: Yes (Other)
  Sender: FDA-Public Use
  Company Number: AU-MYLANLABS-2012S1024259

PATIENT
  Age: 18 Year
  Sex: Male

DRUGS (3)
  1. FLUOXETINE [Suspect]
     Indication: DEPRESSION
     Route: 048
  2. ZYPREXA [Suspect]
     Dates: start: 201206
  3. RIVOTRIL [Concomitant]

REACTIONS (2)
  - Rhabdomyolysis [Unknown]
  - Blood creatine phosphokinase decreased [Unknown]
